FAERS Safety Report 4568299-9 (Version None)
Quarter: 2005Q1

REPORT INFORMATION
  Report Type: 
  Country: None (occurrence: None)
  Receive Date: 20050202
  Receipt Date: 20050120
  Transmission Date: 20050727
  Serious: Yes (Other)
  Sender: FDA-Public Use
  Company Number: FR-GLAXOSMITHKLINE-B0365800A

PATIENT
  Age: 31 Year
  Sex: Female

DRUGS (4)
  1. DEROXAT [Suspect]
     Indication: ILL-DEFINED DISORDER
     Route: 048
  2. ATARAX [Suspect]
     Indication: ILL-DEFINED DISORDER
     Route: 048
  3. MEPRONIZINE [Suspect]
     Route: 048
  4. ALCOHOL [Suspect]

REACTIONS (2)
  - DRUG EXPOSURE DURING PREGNANCY [None]
  - SUICIDE ATTEMPT [None]
